FAERS Safety Report 24352960 (Version 1)
Quarter: 2024Q3

REPORT INFORMATION
  Report Type: Spontaneous
  Country: CN (occurrence: CN)
  Receive Date: 20240923
  Receipt Date: 20240923
  Transmission Date: 20241017
  Serious: No
  Sender: ROCHE
  Company Number: CN-ROCHE-3465582

PATIENT
  Age: 55 Year
  Sex: Female

DRUGS (2)
  1. TRASTUZUMAB [Suspect]
     Active Substance: TRASTUZUMAB
     Indication: Rectal cancer
     Route: 041
     Dates: start: 20230130
  2. PYROTINIB [Concomitant]
     Active Substance: PYROTINIB
     Indication: Rectal cancer
     Dates: start: 20230130

REACTIONS (3)
  - Abdominal pain [Recovering/Resolving]
  - Off label use [Unknown]
  - Abdominal discomfort [Recovering/Resolving]

NARRATIVE: CASE EVENT DATE: 20230131
